FAERS Safety Report 8797398 (Version 4)
Quarter: 2012Q4

REPORT INFORMATION
  Report Type: 
  Country: US (occurrence: US)
  Receive Date: 20120920
  Receipt Date: 20121211
  Transmission Date: 20130627
  Serious: No
  Sender: FDA-Public Use
  Company Number: US-PFIZER INC-2012232063

PATIENT
  Age: 82 Year
  Sex: Female
  Weight: 82.99 kg

DRUGS (4)
  1. LYRICA [Suspect]
     Indication: SHINGLES
     Dosage: 75 mg, 2x/day
     Dates: start: 20120830, end: 20120830
  2. LYRICA [Suspect]
     Indication: POST HERPETIC NEURALGIA
     Dosage: 75 mg, 2x/day
     Dates: start: 20121001
  3. LYRICA [Suspect]
     Dosage: UNK
  4. GABAPENTIN [Suspect]
     Indication: SHINGLES
     Dosage: UNK
     Dates: start: 20120831, end: 20120925

REACTIONS (11)
  - Visual impairment [Unknown]
  - Euphoric mood [Unknown]
  - Somnolence [Unknown]
  - Fatigue [Unknown]
  - Tremor [Recovered/Resolved]
  - Drug ineffective [Unknown]
  - Incorrect dose administered [Unknown]
  - Discomfort [Unknown]
  - Pain [Unknown]
  - Emotional disorder [Unknown]
  - Depressed mood [Unknown]
